FAERS Safety Report 4890913-9 (Version None)
Quarter: 2006Q1

REPORT INFORMATION
  Report Type: 
  Country: None (occurrence: None)
  Receive Date: 20060125
  Receipt Date: 20060116
  Transmission Date: 20060701
  Serious: Yes (Hospitalization)
  Sender: FDA-Public Use
  Company Number: PHRM2006FR00544

PATIENT
  Age: 78 Year
  Sex: Male
  Weight: 87 kg

DRUGS (3)
  1. VASTEN [Concomitant]
     Route: 048
  2. ESOMEPRAZOLE (INEXIUM) [Concomitant]
     Route: 048
  3. COTAREG [Suspect]
     Route: 048
     Dates: end: 20051012

REACTIONS (6)
  - BLOOD CREATININE INCREASED [None]
  - BLOOD POTASSIUM INCREASED [None]
  - BLOOD UREA INCREASED [None]
  - CEREBROVASCULAR ACCIDENT [None]
  - FLUID REPLACEMENT [None]
  - RENAL FAILURE ACUTE [None]
